FAERS Safety Report 9283526 (Version 2)
Quarter: 2013Q2

REPORT INFORMATION
  Report Type: Spontaneous
  Country: DE (occurrence: None)
  Receive Date: 20130506
  Receipt Date: 20130506
  Transmission Date: 20140414
  Serious: Yes (Other)
  Sender: FDA-Public Use
  Company Number: AUR-APL-2013-03723

PATIENT
  Age: 64 Year
  Sex: Male
  Weight: 75 kg

DRUGS (1)
  1. CEFUROXIME [Suspect]
     Indication: PNEUMONIA
     Dosage: (500 MG, 2 IN 1 D)
     Dates: start: 20130102

REACTIONS (1)
  - Grand mal convulsion [None]
